FAERS Safety Report 14184080 (Version 3)
Quarter: 2017Q4

REPORT INFORMATION
  Report Type: Spontaneous
  Country: CN (occurrence: CN)
  Receive Date: 20171113
  Receipt Date: 20171127
  Transmission Date: 20180321
  Serious: Yes (Other)
  Sender: FDA-Public Use
  Company Number: CN-IMPAX LABORATORIES, INC-2017-IPXL-03129

PATIENT
  Sex: Female

DRUGS (1)
  1. ALBENZA [Suspect]
     Active Substance: ALBENDAZOLE
     Indication: HELMINTHIC INFECTION
     Dosage: 200 MG, UNK
     Route: 048

REACTIONS (12)
  - Asthenia [Unknown]
  - Gastritis [Unknown]
  - Abdominal discomfort [Unknown]
  - Abdominal pain upper [Unknown]
  - Chronic gastritis [Unknown]
  - Gastrointestinal injury [Unknown]
  - Haemorrhage [Unknown]
  - Gastrointestinal mucosa hyperaemia [Unknown]
  - Haematochezia [Unknown]
  - Discomfort [Unknown]
  - Epigastric discomfort [Unknown]
  - Abdominal pain [Unknown]

NARRATIVE: CASE EVENT DATE: 20171102
